FAERS Safety Report 11065544 (Version 2)
Quarter: 2015Q2

REPORT INFORMATION
  Report Type: Spontaneous
  Country: US (occurrence: US)
  Receive Date: 20150425
  Receipt Date: 20150525
  Transmission Date: 20150821
  Serious: No
  Sender: FDA-Public Use
  Company Number: US-JNJFOC-20140419567

PATIENT
  Sex: Female
  Weight: 57 kg

DRUGS (1)
  1. STELARA [Suspect]
     Active Substance: USTEKINUMAB
     Indication: PSORIASIS
     Dosage: 270 MG FIRST DOSE
     Route: 058

REACTIONS (2)
  - Drug dose omission [Unknown]
  - Syringe issue [Unknown]
